FAERS Safety Report 8276860-3 (Version None)
Quarter: 2012Q2

REPORT INFORMATION
  Report Type: 
  Country: None (occurrence: None)
  Receive Date: 20120412
  Receipt Date: 20120404
  Transmission Date: 20120825
  Serious: Yes (Hospitalization)
  Sender: FDA-Public Use
  Company Number: GB-SANOFI-AVENTIS-2012SA009544

PATIENT
  Age: 68 Year
  Sex: Female

DRUGS (6)
  1. ANTINEOPLASTIC AGENTS [Suspect]
     Route: 048
     Dates: start: 20111130
  2. RIFAMPICIN [Suspect]
     Route: 048
     Dates: start: 20120127, end: 20120129
  3. RIFAMPICIN [Suspect]
     Route: 048
     Dates: start: 20120207
  4. ANTINEOPLASTIC AGENTS [Suspect]
     Route: 048
     Dates: end: 20120203
  5. ETHAMBUTOL HYDROCHLORIDE [Suspect]
     Route: 048
     Dates: start: 20120127, end: 20120129
  6. ANTINEOPLASTIC AGENTS [Suspect]
     Route: 048
     Dates: start: 20120216

REACTIONS (5)
  - DYSPNOEA [None]
  - CONFUSIONAL STATE [None]
  - COORDINATION ABNORMAL [None]
  - MUSCULAR WEAKNESS [None]
  - DRUG INTERACTION [None]
